FAERS Safety Report 15264297 (Version 1)
Quarter: 2018Q3

REPORT INFORMATION
  Report Type: Spontaneous
  Country: FR (occurrence: FR)
  Receive Date: 20180810
  Receipt Date: 20180810
  Transmission Date: 20181010
  Serious: Yes (Other)
  Sender: FDA-Public Use
  Company Number: FR-CHEPLA-2018FR016

PATIENT
  Age: 35 Year
  Sex: Female

DRUGS (1)
  1. XENICAL [Suspect]
     Active Substance: ORLISTAT
     Dosage: 9 CAPSULES / DAY
     Route: 048
     Dates: start: 2015

REACTIONS (2)
  - Dependence [Unknown]
  - Product use in unapproved indication [Unknown]
